FAERS Safety Report 20944737 (Version 2)
Quarter: 2022Q3

REPORT INFORMATION
  Report Type: Report from Study
  Country: CH (occurrence: CH)
  Receive Date: 20220610
  Receipt Date: 20220701
  Transmission Date: 20221026
  Serious: Yes (Hospitalization)
  Sender: FDA-Public Use
  Company Number: CH-BRISTOL-MYERS SQUIBB COMPANY-2022-052751

PATIENT
  Age: 68 Year
  Sex: Female
  Weight: 94 kg

DRUGS (34)
  1. CARBOPLATIN [Suspect]
     Active Substance: CARBOPLATIN
     Indication: Non-small cell lung cancer
     Route: 065
     Dates: start: 20210906, end: 20210906
  2. CARBOPLATIN [Suspect]
     Active Substance: CARBOPLATIN
     Route: 065
     Dates: start: 20210927, end: 20210927
  3. PEMETREXED DISODIUM [Suspect]
     Active Substance: PEMETREXED DISODIUM
     Indication: Non-small cell lung cancer
     Route: 065
     Dates: start: 20210906, end: 20210906
  4. PEMETREXED DISODIUM [Suspect]
     Active Substance: PEMETREXED DISODIUM
     Route: 065
     Dates: start: 20210927, end: 20210927
  5. NASONEX [Concomitant]
     Active Substance: MOMETASONE FUROATE
     Indication: Prophylaxis
     Dosage: AS NEEDED
     Route: 045
     Dates: start: 20210901
  6. PENTAMIDINE [Concomitant]
     Active Substance: PENTAMIDINE
     Indication: Prophylaxis
     Dosage: AS NEEDED
     Route: 055
     Dates: start: 20211108
  7. BISOPROLOL [Concomitant]
     Active Substance: BISOPROLOL
     Indication: Product used for unknown indication
     Dosage: DAILY; PER DAY
     Route: 048
  8. SODIUM CHONDROITIN SULFATE [Concomitant]
     Active Substance: SODIUM CHONDROITIN SULFATE
     Indication: Product used for unknown indication
     Dosage: DAILY; PER DAY
     Route: 048
  9. ALLOPURINOL [Concomitant]
     Active Substance: ALLOPURINOL
     Indication: Product used for unknown indication
     Dosage: DAILY; PER DAY
     Route: 048
  10. TRIMIPRAMINE [Concomitant]
     Active Substance: TRIMIPRAMINE
     Indication: Product used for unknown indication
     Dosage: DAILY; PER DAY
     Route: 048
  11. ANDREAFOL [Concomitant]
     Route: 048
     Dates: start: 20210901
  12. ANDREAFOL [Concomitant]
     Indication: Product used for unknown indication
  13. METFORMIN HYDROCHLORIDE [Concomitant]
     Active Substance: METFORMIN HYDROCHLORIDE
     Indication: Product used for unknown indication
     Dosage: BD; TWICE PER DAY
     Route: 048
  14. TOPLEXIL (OXOMEMAZIN, NATRIUM BENZOAT) [Concomitant]
     Indication: Prophylaxis
     Dosage: 1 UNITS NOT SPECIFIED, AS NEEDED
     Route: 048
     Dates: start: 20210901
  15. TEMESTA (IF NEEDED) [Concomitant]
     Indication: Product used for unknown indication
     Dosage: 4 TIMES PER DAY
     Route: 048
     Dates: start: 20210901
  16. PRIMPERAN (AS NEEDED) [Concomitant]
     Indication: Prophylaxis
     Dosage: 4 TIMES PER DAY
     Route: 048
     Dates: start: 20210901
  17. DAFALGAN IF NEEDED [Concomitant]
     Indication: Product used for unknown indication
     Dosage: 1 UNITS NOT SPECIFIED, AS NEEDED
     Route: 048
     Dates: start: 20210909
  18. IMODIUM IF NEEDED [Concomitant]
     Indication: Product used for unknown indication
     Dosage: 1 UNITS NOT SPECIFIED, AS NEEDED
     Route: 048
     Dates: start: 20210909
  19. EXCIPIAL CREAM(UNKNOWN ACTIVE INGREDIENTS)-INDICATED FOR RASH [Concomitant]
     Indication: Rash
     Dosage: 1 UNITS NOT SPECIFIED, BD; TWICE PER DAY
     Route: 061
     Dates: start: 20211004
  20. ANTIDRY [Concomitant]
     Indication: Product used for unknown indication
     Dosage: 1 UNITS NOT SPECIFIED, BD; TWICE PER DAY
     Route: 061
     Dates: start: 20211004
  21. TRAMAL 100MG/ML DROPS [Concomitant]
     Indication: Product used for unknown indication
     Dosage: 10 UNITS NOT SPECIFIED, 6 TIMES DAILY
     Route: 048
     Dates: start: 20211122
  22. TRAMAL RETARD 50MG [Concomitant]
     Indication: Product used for unknown indication
     Dosage: BD; TWICE PER DAY
     Route: 048
     Dates: start: 20211122
  23. MOVICOL [Concomitant]
     Active Substance: POLYETHYLENE GLYCOL 3350\POTASSIUM CHLORIDE\SODIUM BICARBONATE\SODIUM CHLORIDE
     Indication: Prophylaxis
     Dosage: 1 UNITS NOT SPECIFIED, BD; TWICE PER DAY
     Route: 048
     Dates: start: 20211122
  24. VIMOVO (ESOMEPRAZOL+NAPROXEN) [Concomitant]
     Indication: Product used for unknown indication
     Dosage: 1 UNITS NOT SPECIFIED, BD; TWICE PER DAY
     Route: 048
     Dates: start: 20211125
  25. CALCIMAGON D3 FORTE 1000/800 [Concomitant]
     Indication: Prophylaxis
     Dosage: 1 UNITS NOT SPECIFIED, DAILY; PER DAY
     Route: 048
     Dates: start: 20211221
  26. PANTOZOL [Concomitant]
     Active Substance: PANTOPRAZOLE SODIUM
     Indication: Prophylaxis
     Dosage: DAILY; PER DAY
     Route: 048
     Dates: start: 20211221
  27. PREDNISONE [Concomitant]
     Active Substance: PREDNISONE
     Indication: Product used for unknown indication
     Dosage: DAILY; PER DAY
     Route: 048
     Dates: start: 20220116
  28. TELMISARTAN 80/25 [Concomitant]
     Indication: Product used for unknown indication
     Dosage: DAILY; PER DAY
     Route: 048
  29. ANTISTAX [Concomitant]
     Indication: Product used for unknown indication
     Dosage: 1 UNITS NOT SPECIFIED, DAILY; PER DAY
     Route: 048
  30. VIKTOZA [Concomitant]
     Indication: Product used for unknown indication
     Dosage: DAILY; PER DAY
     Route: 048
  31. EZETIMIB 10/20 [Concomitant]
     Indication: Product used for unknown indication
     Dosage: DAILY; PER DAY
     Route: 048
  32. MODERNA COVID-19 VACCINE [Concomitant]
     Active Substance: ELASOMERAN
     Indication: Prophylaxis
     Route: 030
     Dates: start: 20210330
  33. MODERNA COVID-19 VACCINE [Concomitant]
     Active Substance: ELASOMERAN
     Route: 030
     Dates: start: 20210511
  34. MODERNA COVID-19 VACCINE [Concomitant]
     Active Substance: ELASOMERAN
     Route: 030
     Dates: start: 20220119

REACTIONS (1)
  - Abdominal pain [Recovered/Resolved]

NARRATIVE: CASE EVENT DATE: 20220527
